FAERS Safety Report 16784785 (Version 2)
Quarter: 2019Q3

REPORT INFORMATION
  Report Type: Spontaneous
  Country: DE (occurrence: DE)
  Receive Date: 20190909
  Receipt Date: 20190917
  Transmission Date: 20191005
  Serious: Yes (Other)
  Sender: FDA-Public Use
  Company Number: DE-ROCHE-2400843

PATIENT

DRUGS (6)
  1. ELOCTA [Concomitant]
     Active Substance: EFMOROCTOCOG ALFA
     Route: 065
  2. HAEMOCTIN [Concomitant]
  3. FEIBA [Concomitant]
     Active Substance: ANTI-INHIBITOR COAGULANT COMPLEX
     Route: 065
  4. RITUXIMAB. [Suspect]
     Active Substance: RITUXIMAB
     Indication: HAEMOPHILIA A WITH ANTI FACTOR VIII
     Dosage: 2 ADMINISTRATIONS AT AN INTERVAL OF 6 MONTHS
     Route: 065
  5. FEIBA [Concomitant]
     Active Substance: ANTI-INHIBITOR COAGULANT COMPLEX
     Route: 065
  6. MYCOPHENOLATE MOFETIL. [Suspect]
     Active Substance: MYCOPHENOLATE MOFETIL
     Indication: HAEMOPHILIA A WITH ANTI FACTOR VIII
     Route: 065

REACTIONS (7)
  - Intentional product use issue [Unknown]
  - Obesity [Unknown]
  - Vascular device infection [Unknown]
  - Haemarthrosis [Unknown]
  - Device dislocation [Unknown]
  - Drug tolerance [Unknown]
  - Off label use [Unknown]
